FAERS Safety Report 4654472-8 (Version None)
Quarter: 2005Q2

REPORT INFORMATION
  Report Type: 
  Country: None (occurrence: None)
  Receive Date: 20050505
  Receipt Date: 20050505
  Transmission Date: 20051028
  Serious: Yes (Hospitalization)
  Sender: FDA-Public Use
  Company Number: None

PATIENT
  Age: 53 Year
  Sex: Female
  Weight: 110.2241 kg

DRUGS (3)
  1. IBUPROFEN [Suspect]
     Indication: FIBROMYALGIA
     Dosage: 800MG PO BID
     Route: 048
     Dates: start: 20041201, end: 20050401
  2. LISINOPRIL [Suspect]
     Indication: DIABETES MELLITUS
     Dosage: 20 MG PO DAILY
     Route: 048
     Dates: start: 20040901, end: 20050401
  3. LISINOPRIL [Suspect]
     Indication: HYPERTENSION
     Dosage: 20 MG PO DAILY
     Route: 048
     Dates: start: 20040901, end: 20050401

REACTIONS (1)
  - PANCREATITIS [None]
